FAERS Safety Report 8362555-4 (Version None)
Quarter: 2012Q2

REPORT INFORMATION
  Report Type: 
  Country: None (occurrence: None)
  Receive Date: 20120514
  Receipt Date: 20120503
  Transmission Date: 20120825
  Serious: No
  Sender: FDA-Public Use
  Company Number: 2012SP023772

PATIENT
  Sex: Female

DRUGS (1)
  1. SYCREST (ASENAPINE /05706901/) [Suspect]
     Indication: MANIA
     Dosage: 5 MG;QD;PO
     Route: 048
     Dates: start: 20120427, end: 20120427

REACTIONS (4)
  - HYPOAESTHESIA ORAL [None]
  - DIZZINESS [None]
  - DYSPHAGIA [None]
  - SWOLLEN TONGUE [None]
